FAERS Safety Report 9822143 (Version 1)
Quarter: 2014Q1

REPORT INFORMATION
  Report Type: Spontaneous
  Country: IN (occurrence: IN)
  Receive Date: 20140116
  Receipt Date: 20140116
  Transmission Date: 20141002
  Serious: Yes (Other)
  Sender: FDA-Public Use
  Company Number: PHHY2014IN002232

PATIENT
  Age: 57 Year
  Sex: Male

DRUGS (12)
  1. LORAZEPAM [Suspect]
     Indication: DEPRESSION
     Dosage: 3 MG, DU
  2. LORAZEPAM [Suspect]
     Indication: AUTONOMIC NERVOUS SYSTEM IMBALANCE
     Dosage: 2 MG, UNK
  3. LORAZEPAM [Suspect]
     Indication: MUSCLE TIGHTNESS
     Dosage: 1 MG, TID
     Route: 048
  4. LORAZEPAM [Suspect]
     Dosage: 1 MG, TID
  5. LORAZEPAM [Suspect]
     Indication: DEPRESSION
     Dosage: 4 MG, UNK
     Route: 042
  6. AMLODIPINE [Concomitant]
     Indication: HYPERTENSION
     Dosage: 5 MG, UNK
  7. LOSARTAN [Concomitant]
     Indication: HYPERTENSION
     Dosage: 50 MG, UNK
  8. HYDROCHLOROTHIAZIDE [Concomitant]
     Indication: HYPERTENSION
     Dosage: 12.5 MG, UNK
  9. VENLAFAXINE [Concomitant]
     Dosage: 150 MG, UNK
  10. MIRTAZAPINE [Concomitant]
     Dosage: 15 MG, UNK
  11. ZOLPIDEM [Concomitant]
     Indication: SLEEP DISORDER
     Dosage: 5 MG, UNK
  12. SERTRALINE [Concomitant]
     Dosage: 100 MG, UNK

REACTIONS (12)
  - Catatonia [Recovering/Resolving]
  - Restlessness [Unknown]
  - Balance disorder [Recovering/Resolving]
  - Dyskinesia [Recovering/Resolving]
  - Grimacing [Recovering/Resolving]
  - Psychomotor retardation [Recovering/Resolving]
  - Hypophagia [Recovering/Resolving]
  - Mutism [Recovering/Resolving]
  - Posturing [Recovering/Resolving]
  - Emotional poverty [Recovering/Resolving]
  - Negativism [Recovering/Resolving]
  - Drug withdrawal syndrome [Recovering/Resolving]
